FAERS Safety Report 11848682 (Version 2)
Quarter: 2016Q1

REPORT INFORMATION
  Report Type: Spontaneous
  Country: US (occurrence: US)
  Receive Date: 20151218
  Receipt Date: 20160210
  Transmission Date: 20160526
  Serious: No
  Sender: FDA-Public Use
  Company Number: US-009507513-1512USA008099

PATIENT
  Sex: Male

DRUGS (1)
  1. CUBICIN [Suspect]
     Active Substance: DAPTOMYCIN
     Indication: PRODUCT USED FOR UNKNOWN INDICATION
     Dosage: UNK
     Route: 042
     Dates: start: 201511

REACTIONS (5)
  - Infusion site pain [Unknown]
  - Drug administration error [Unknown]
  - Infusion site discharge [Unknown]
  - Underdose [Unknown]
  - Infusion site extravasation [Unknown]

NARRATIVE: CASE EVENT DATE: 201511
